FAERS Safety Report 7585298-3 (Version None)
Quarter: 2011Q2

REPORT INFORMATION
  Report Type: 
  Country: None (occurrence: None)
  Receive Date: 20110629
  Receipt Date: 20110629
  Transmission Date: 20111010
  Serious: Yes (Life-Threatening)
  Sender: FDA-Public Use
  Company Number: None

PATIENT
  Age: 59 Year
  Sex: Female
  Weight: 63.5036 kg

DRUGS (2)
  1. VENLAFAXINE [Suspect]
     Indication: DEPRESSION
     Dosage: 1/2 TAB. 1ONCE A DAY PO 6:00 PM
     Route: 048
     Dates: start: 20110606, end: 20110606
  2. VENLAFAXINE [Suspect]
     Indication: DEPRESSION
     Dosage: 1/2 TAB. 1ONCE A DAY PO 6:00 PM
     Route: 048
     Dates: start: 20110609

REACTIONS (20)
  - VISION BLURRED [None]
  - NERVOUSNESS [None]
  - ABDOMINAL DISCOMFORT [None]
  - ASTHENIA [None]
  - NAUSEA [None]
  - DYSPNOEA [None]
  - ANXIETY [None]
  - HEADACHE [None]
  - INSOMNIA [None]
  - CHILLS [None]
  - HEART RATE IRREGULAR [None]
  - MOTOR DYSFUNCTION [None]
  - VISUAL IMPAIRMENT [None]
  - SOMNOLENCE [None]
  - HYPERHIDROSIS [None]
  - VOMITING [None]
  - DIZZINESS [None]
  - DRY MOUTH [None]
  - FLUSHING [None]
  - PANIC ATTACK [None]
